FAERS Safety Report 8659619 (Version 2)
Quarter: 2012Q4

REPORT INFORMATION
  Report Type: Spontaneous
  Country: FR (occurrence: None)
  Receive Date: 20120622
  Receipt Date: 20120823
  Transmission Date: 20130627
  Serious: Yes (Other)
  Sender: FDA-Public Use
  Company Number: FR-1192635

PATIENT
  Age: 68 Year
  Sex: Female

DRUGS (3)
  1. AZOPT [Suspect]
     Dosage: (OPHTHALMIC)
  2. BAMBUTEROL [Suspect]
  3. THEOPHYLLINE [Suspect]

REACTIONS (4)
  - ASPIRATION [None]
  - GASTROOESOPHAGEAL REFLUX DISEASE [None]
  - DYSPEPSIA [None]
  - NAUSEA [None]
